FAERS Safety Report 17542703 (Version 1)
Quarter: 2020Q1

REPORT INFORMATION
  Report Type: Spontaneous
  Country: PT (occurrence: PT)
  Receive Date: 20200315
  Receipt Date: 20200315
  Transmission Date: 20200409
  Serious: Yes (Other)
  Sender: FDA-Public Use
  Company Number: NVSC2020PT065846

PATIENT
  Age: 46 Year
  Sex: Female
  Weight: 48 kg

DRUGS (1)
  1. BISOPROLOL SANDOZ 5 MG COMPRIMIDOS REVESTIDOS [Suspect]
     Active Substance: BISOPROLOL FUMARATE
     Indication: MITRAL VALVE INCOMPETENCE
     Dosage: 5 MG, QD (5 MG, 1X DIA, A NOITE   )
     Route: 048
     Dates: start: 20190915, end: 20191130

REACTIONS (6)
  - Feeling hot [Recovered/Resolved]
  - Agitation [Recovered/Resolved]
  - Tremor [Recovered/Resolved]
  - Product substitution issue [Unknown]
  - Arrhythmia [Recovered/Resolved]
  - Hyperhidrosis [Recovered/Resolved]

NARRATIVE: CASE EVENT DATE: 20191109
